FAERS Safety Report 18326588 (Version 1)
Quarter: 2020Q3

REPORT INFORMATION
  Report Type: Report from Study
  Country: None (occurrence: DO)
  Receive Date: 20200930
  Receipt Date: 20200930
  Transmission Date: 20201103
  Serious: Yes (Other)
  Sender: FDA-Public Use
  Company Number: DO-ABBVIE-20K-279-3587221-00

PATIENT
  Sex: Female

DRUGS (1)
  1. IMBRUVICA [Suspect]
     Active Substance: IBRUTINIB
     Indication: PAROXYSMAL NOCTURNAL HAEMOGLOBINURIA
     Route: 048
     Dates: start: 20200212

REACTIONS (4)
  - Product use in unapproved indication [Unknown]
  - Transplant rejection [Unknown]
  - Off label use [Unknown]
  - Skin discolouration [Unknown]

NARRATIVE: CASE EVENT DATE: 20200212
